FAERS Safety Report 4461727-9 (Version None)
Quarter: 2004Q3

REPORT INFORMATION
  Report Type: 
  Country: None (occurrence: None)
  Receive Date: 20040929
  Receipt Date: 20040923
  Transmission Date: 20050211
  Serious: Yes (Other)
  Sender: FDA-Public Use
  Company Number: PHRM2004FR02896

PATIENT
  Age: 69 Year
  Sex: Female

DRUGS (1)
  1. TRILEPTAL [Suspect]
     Route: 048

REACTIONS (1)
  - HEPATITIS [None]
